FAERS Safety Report 10541719 (Version 2)
Quarter: 2014Q4

REPORT INFORMATION
  Report Type: Spontaneous
  Country: US (occurrence: US)
  Receive Date: 20141024
  Receipt Date: 20141024
  Transmission Date: 20150529
  Serious: No
  Sender: FDA-Public Use
  Company Number: US-ALLERGAN-1408720US

PATIENT
  Age: 71 Year
  Sex: Female

DRUGS (2)
  1. ALPHAGAN P [Suspect]
     Active Substance: BRIMONIDINE TARTRATE
     Dosage: 1 GTT, UNK
     Route: 047
     Dates: start: 2012, end: 201402
  2. ALPHAGAN P [Suspect]
     Active Substance: BRIMONIDINE TARTRATE
     Indication: GLAUCOMA
     Dosage: 1 GTT, UNK
     Route: 047
     Dates: start: 201402

REACTIONS (4)
  - Conjunctivitis allergic [Not Recovered/Not Resolved]
  - Inappropriate schedule of drug administration [Unknown]
  - Dry mouth [Not Recovered/Not Resolved]
  - Scleral hyperaemia [Not Recovered/Not Resolved]

NARRATIVE: CASE EVENT DATE: 201402
